FAERS Safety Report 4782565-3 (Version None)
Quarter: 2005Q3

REPORT INFORMATION
  Report Type: 
  Country: None (occurrence: None)
  Receive Date: 20050929
  Receipt Date: 20050323
  Transmission Date: 20060218
  Serious: No
  Sender: FDA-Public Use
  Company Number: US-GLAXOSMITHKLINE-A0551060A

PATIENT
  Age: 66 Year
  Sex: Female

DRUGS (15)
  1. COREG [Suspect]
     Indication: HYPERTENSION
     Dosage: 12.5MG TWICE PER DAY
     Route: 048
  2. CLONIDINE [Suspect]
     Dosage: .3MG FOUR TIMES PER DAY
  3. LIPITOR [Concomitant]
  4. GLUCOSAMINE [Concomitant]
  5. TYLENOL (CAPLET) [Concomitant]
  6. ASPIRIN [Concomitant]
  7. VITAMINS [Concomitant]
  8. CALCIUM GLUCONATE [Concomitant]
  9. IRON [Concomitant]
  10. CLONIDINE HCL [Concomitant]
  11. PREVACID [Concomitant]
  12. PREMARIN [Concomitant]
  13. FUROSEMIDE [Concomitant]
  14. POTASSIUM [Concomitant]
  15. CLONAZEPAM [Concomitant]

REACTIONS (7)
  - ASTHENIA [None]
  - BLOOD PRESSURE DECREASED [None]
  - DRUG ADMINISTRATION ERROR [None]
  - DRUG INEFFECTIVE [None]
  - HYPERTENSION [None]
  - NAUSEA [None]
  - OVERDOSE [None]
